FAERS Safety Report 4475878-6 (Version None)
Quarter: 2004Q4

REPORT INFORMATION
  Report Type: 
  Country: None (occurrence: None)
  Receive Date: 20041012
  Receipt Date: 20040929
  Transmission Date: 20050328
  Serious: Yes (Other)
  Sender: FDA-Public Use
  Company Number: 2004236479US

PATIENT
  Age: 41 Year
  Sex: Male

DRUGS (7)
  1. CLARITHROMYCIN [Suspect]
     Dosage: 500 MG, BID, ORAL
     Route: 048
  2. LINEZOLID (LINEZOLID) TABLET [Suspect]
     Dosage: 600 MG, BID, ORAL
     Route: 048
  3. PREDNISONE [Concomitant]
  4. SERTRALINE HCL [Concomitant]
  5. GABAPENTIN [Concomitant]
  6. ROFECOXIB [Concomitant]
  7. FAMOTIDINE [Concomitant]

REACTIONS (10)
  - AUTOIMMUNE HEPATITIS [None]
  - CHILLS [None]
  - CONDITION AGGRAVATED [None]
  - COUGH [None]
  - DERMATOMYOSITIS [None]
  - DISEASE RECURRENCE [None]
  - JOINT EFFUSION [None]
  - MYCOBACTERIAL INFECTION [None]
  - PANCYTOPENIA [None]
  - PYREXIA [None]
